FAERS Safety Report 4626820-6 (Version None)
Quarter: 2005Q2

REPORT INFORMATION
  Report Type: 
  Country: None (occurrence: None)
  Receive Date: 20050401
  Receipt Date: 20050401
  Transmission Date: 20051028
  Serious: Yes (Hospitalization)
  Sender: FDA-Public Use
  Company Number: None

PATIENT
  Age: 66 Year
  Sex: Male
  Weight: 80.7403 kg

DRUGS (11)
  1. OXALIPLATIN [Suspect]
     Indication: PANCREATIC CARCINOMA
     Dosage: 130 MG/M2 IV DAY 1
     Route: 042
     Dates: start: 20050317
  2. XELODA [Suspect]
     Indication: PANCREATIC CARCINOMA
     Dosage: 2000 MG/M2 PO QD
     Route: 048
     Dates: start: 20050317, end: 20050331
  3. FLOVENT [Concomitant]
  4. MAXAIR [Concomitant]
  5. LISINOPRIL [Concomitant]
  6. PRILOSEC [Concomitant]
  7. LIPITOR [Concomitant]
  8. SINEQUAN [Concomitant]
  9. LOVENOX [Concomitant]
  10. DOXEPIN HCL [Concomitant]
  11. HYDROMORPHONE [Concomitant]

REACTIONS (3)
  - DEEP VEIN THROMBOSIS [None]
  - PULMONARY EMBOLISM [None]
  - VISUAL DISTURBANCE [None]
